FAERS Safety Report 14524616 (Version 2)
Quarter: 2018Q1

REPORT INFORMATION
  Report Type: Spontaneous
  Country: US (occurrence: US)
  Receive Date: 20180213
  Receipt Date: 20180223
  Transmission Date: 20180509
  Serious: No
  Sender: FDA-Public Use
  Company Number: US-JNJFOC-20180202014

PATIENT
  Age: 8 Decade
  Sex: Female

DRUGS (1)
  1. SUDAFED NASAL DECONGESTANT MAXIMUM STRENGTH [Suspect]
     Active Substance: PSEUDOEPHEDRINE HYDROCHLORIDE
     Indication: SINUS DISORDER
     Dosage: 6 TABLETS ALL AT ONCE (DEPENDING ON THE WEATHER)
     Route: 048

REACTIONS (2)
  - Product packaging issue [Unknown]
  - Incorrect dose administered [Unknown]
